FAERS Safety Report 6995097-9 (Version None)
Quarter: 2010Q3

REPORT INFORMATION
  Report Type: 
  Country: None (occurrence: None)
  Receive Date: 20100915
  Receipt Date: 20100831
  Transmission Date: 20110219
  Serious: Yes (Life-Threatening)
  Sender: FDA-Public Use
  Company Number: 002380

PATIENT
  Sex: Female
  Weight: 53.6 kg

DRUGS (7)
  1. LACOSAMIDE [Suspect]
     Indication: CONVULSION
     Dosage: (200 MG BID ORAL), (100 MG BID ORAL)
     Route: 048
     Dates: start: 20090101, end: 20090101
  2. LACOSAMIDE [Suspect]
     Indication: CONVULSION
     Dosage: (200 MG BID ORAL), (100 MG BID ORAL)
     Route: 048
     Dates: start: 20090101
  3. KEPPRA [Suspect]
     Indication: CONVULSION
     Dosage: (1500 MG  TID ORAL), (1000 MG TID ORAL)
     Route: 048
     Dates: start: 20090101, end: 20100605
  4. KEPPRA [Suspect]
     Indication: CONVULSION
     Dosage: (1500 MG  TID ORAL), (1000 MG TID ORAL)
     Route: 048
     Dates: start: 20090101
  5. KEPPRA [Suspect]
     Dosage: (3000 MG QD ORAL), (3750 MG, 750 MG, 3 TABLETS AT NIGHT AND 2 IN THE MORNING ORAL)
     Route: 048
     Dates: start: 20100101
  6. KEPPRA [Suspect]
     Dosage: (3000 MG QD ORAL), (3750 MG, 750 MG, 3 TABLETS AT NIGHT AND 2 IN THE MORNING ORAL)
     Route: 048
     Dates: start: 20100605
  7. LYRICA [Concomitant]

REACTIONS (4)
  - DEPRESSION SUICIDAL [None]
  - EMOTIONAL DISORDER [None]
  - FATIGUE [None]
  - SKIN LESION [None]
